FAERS Safety Report 20736420 (Version 1)
Quarter: 2022Q2

REPORT INFORMATION
  Report Type: Other
  Country: CA (occurrence: CA)
  Receive Date: 20220421
  Receipt Date: 20220421
  Transmission Date: 20220720
  Serious: No
  Sender: FDA-Public Use
  Company Number: CA-TARO-2022TAR00563

PATIENT
  Age: 76 Year
  Sex: Male

DRUGS (12)
  1. BETADERM [Suspect]
     Active Substance: BETAMETHASONE VALERATE
     Indication: Rash
     Dosage: UNK
     Route: 065
  2. BETADERM [Suspect]
     Active Substance: BETAMETHASONE VALERATE
     Indication: Pruritus
  3. BETADERM [Suspect]
     Active Substance: BETAMETHASONE VALERATE
     Indication: Rash
     Dosage: UNK, BID, 2 EVERY 1 DAYS
     Route: 065
  4. BETADERM [Suspect]
     Active Substance: BETAMETHASONE VALERATE
     Indication: Pruritus
  5. TIMOLOL MALEATE [Suspect]
     Active Substance: TIMOLOL MALEATE
     Indication: Glaucoma
     Dosage: 1 GTT DROPS, OD, 1 EVERY 1 DAYS
     Route: 047
  6. PREDNISONE [Suspect]
     Active Substance: PREDNISONE
     Indication: Rash
     Dosage: 8 DOSAGE FORM
     Route: 065
  7. PREDNISONE [Suspect]
     Active Substance: PREDNISONE
     Indication: Pruritus
     Dosage: 10 DOSAGE FORM
     Route: 065
  8. PREDNISONE [Suspect]
     Active Substance: PREDNISONE
     Dosage: 4 DOSAGE FORM
     Route: 065
  9. PREDNISONE [Suspect]
     Active Substance: PREDNISONE
     Dosage: 6 DOSAGE FORM
     Route: 065
  10. PREDNISONE [Suspect]
     Active Substance: PREDNISONE
     Dosage: 2 DOSAGE FORM
     Route: 065
  11. PREDNISONE [Suspect]
     Active Substance: PREDNISONE
     Indication: Rash
     Dosage: 50 MG
     Route: 065
  12. PREDNISONE [Suspect]
     Active Substance: PREDNISONE
     Indication: Pruritus

REACTIONS (4)
  - Rash [Not Recovered/Not Resolved]
  - Pruritus [Not Recovered/Not Resolved]
  - Drug ineffective [Unknown]
  - Product substitution issue [Unknown]
